FAERS Safety Report 5034810-7 (Version None)
Quarter: 2006Q2

REPORT INFORMATION
  Report Type: 
  Country: None (occurrence: None)
  Receive Date: 20060627
  Receipt Date: 20060418
  Transmission Date: 20061013
  Serious: Yes (Hospitalization)
  Sender: FDA-Public Use
  Company Number: SG-RB-3140-2006

PATIENT
  Age: 31 Year
  Sex: Male

DRUGS (1)
  1. BUPRENORPHINE HCL [Suspect]
     Indication: DRUG DETOXIFICATION
     Dosage: DOSAGE UNKNOWN
     Route: 042

REACTIONS (3)
  - MYOSITIS [None]
  - RHABDOMYOLYSIS [None]
  - SCIATIC NERVE NEUROPATHY [None]
